FAERS Safety Report 5135272-1 (Version None)
Quarter: 2006Q4

REPORT INFORMATION
  Report Type: 
  Country: None (occurrence: None)
  Receive Date: 20061026
  Receipt Date: 20061019
  Transmission Date: 20070319
  Serious: Yes (Other)
  Sender: FDA-Public Use
  Company Number: SK-AVENTIS-200615374EU

PATIENT
  Age: 74 Year
  Sex: Male

DRUGS (4)
  1. TRENTAL [Suspect]
     Indication: RAYNAUD'S PHENOMENON
     Route: 048
     Dates: start: 20060301, end: 20060303
  2. ANOPYRIN [Concomitant]
     Indication: ARTERIOSCLEROSIS
     Route: 048
  3. SPOPHYLLIN                         /00003701/ [Concomitant]
     Indication: ASTHMA
     Route: 048
  4. SIMVOR [Concomitant]
     Indication: HYPERCHOLESTEROLAEMIA
     Route: 048

REACTIONS (2)
  - HYPOTENSION [None]
  - VERTIGO [None]
